FAERS Safety Report 16867237 (Version 1)
Quarter: 2019Q3

REPORT INFORMATION
  Report Type: Report from Study
  Country: TW (occurrence: TW)
  Receive Date: 20190930
  Receipt Date: 20190930
  Transmission Date: 20191005
  Serious: Yes (Life-Threatening, Other)
  Sender: FDA-Public Use
  Company Number: TW-RECRO GAINESVILLE LLC-REPH-2019-000209

PATIENT
  Age: 24 Year
  Sex: Male
  Weight: 45 kg

DRUGS (1)
  1. VERAPAMIL HYDROCHLORIDE SUSTAINED RELEASE [Suspect]
     Active Substance: VERAPAMIL HYDROCHLORIDE
     Dosage: 50, 80 MILLIGRAM TABLETS, ONE TIME DOSE
     Route: 048

REACTIONS (6)
  - Intentional overdose [Recovered/Resolved]
  - Nausea [Recovered/Resolved]
  - Hypotension [Recovered/Resolved]
  - Hypocalcaemia [Recovered/Resolved]
  - Atrioventricular block complete [Recovered/Resolved]
  - Abdominal pain upper [Recovered/Resolved]
